FAERS Safety Report 6765501-X (Version None)
Quarter: 2010Q2

REPORT INFORMATION
  Report Type: 
  Country: None (occurrence: None)
  Receive Date: 20100611
  Receipt Date: 20100511
  Transmission Date: 20101027
  Serious: No
  Sender: FDA-Public Use
  Company Number: US-BAYER-201015488BCC

PATIENT
  Sex: Female

DRUGS (3)
  1. ALEVE (CAPLET) [Suspect]
     Indication: PAIN
     Dosage: TOOK FROM 2 TO 4 CAPLETS IN A DAY, FOR ABOUT 1 WEEK / BOTTLE COUNT UNKNOWN
     Route: 048
  2. MULTI-VITAMIN [Concomitant]
     Route: 065
  3. BUFFERED VITAMIN C [Concomitant]
     Route: 065

REACTIONS (4)
  - ABDOMINAL DISCOMFORT [None]
  - DYSPEPSIA [None]
  - HEADACHE [None]
  - PAIN [None]
